FAERS Safety Report 6183999-5 (Version None)
Quarter: 2009Q2

REPORT INFORMATION
  Report Type: 
  Country: None (occurrence: None)
  Receive Date: 20090508
  Receipt Date: 20090407
  Transmission Date: 20091009
  Serious: No
  Sender: FDA-Public Use
  Company Number: US-BAYER-200918022NA

PATIENT
  Age: 58 Year
  Sex: Female

DRUGS (4)
  1. AVELOX [Suspect]
     Indication: SINUSITIS
     Dosage: TOTAL DAILY DOSE: 400 MG  UNIT DOSE: 400 MG
  2. TOPROL-XL [Concomitant]
  3. FIORINAL W/CODEINE [Concomitant]
  4. VITAMINS [Concomitant]

REACTIONS (1)
  - RASH [None]
